FAERS Safety Report 10221708 (Version 1)
Quarter: 2014Q2

REPORT INFORMATION
  Report Type: Report from Study
  Country: US (occurrence: US)
  Receive Date: 20140606
  Receipt Date: 20140606
  Transmission Date: 20141212
  Serious: Yes (Hospitalization)
  Sender: FDA-Public Use
  Company Number: US-JNJFOC-20140601224

PATIENT
  Age: 20 Year
  Sex: Male
  Weight: 59.7 kg

DRUGS (2)
  1. REMICADE [Suspect]
     Indication: CROHN^S DISEASE
     Route: 042
     Dates: start: 20100209
  2. HUMIRA [Concomitant]
     Route: 065
     Dates: start: 20100603

REACTIONS (1)
  - Crohn^s disease [Recovered/Resolved]
